FAERS Safety Report 12099208 (Version 2)
Quarter: 2016Q1

REPORT INFORMATION
  Report Type: Spontaneous
  Country: US (occurrence: US)
  Receive Date: 20160222
  Receipt Date: 20160229
  Transmission Date: 20160526
  Serious: Yes (Hospitalization)
  Sender: FDA-Public Use
  Company Number: US-PFIZER INC-2016092188

PATIENT
  Age: 28 Year
  Sex: Male
  Weight: 109 kg

DRUGS (27)
  1. ACETAMINOPHEN. [Concomitant]
     Active Substance: ACETAMINOPHEN
     Dosage: 650 MG, AS NEEDED(Q6H PRN)
     Route: 048
  2. MAGNESIUM SULFATE. [Concomitant]
     Active Substance: MAGNESIUM SULFATE
     Dosage: 50 ML, AS NEEDED (ASDIR PRN )
     Route: 042
  3. HYDROMORPHONE HCL [Concomitant]
     Active Substance: HYDROMORPHONE HYDROCHLORIDE
     Dosage: 0.2 MG, UNK(Q3H PRN IV )
     Route: 042
  4. HYDROMORPHONE HCL [Concomitant]
     Active Substance: HYDROMORPHONE HYDROCHLORIDE
     Dosage: 0.6 MG, UNK(Q3H PRN IV )
     Route: 042
  5. METOPROLOL SUCCINATE. [Concomitant]
     Active Substance: METOPROLOL SUCCINATE
     Dosage: 200 MG, DAILY
     Route: 048
  6. POTASSIUM CHLORIDE. [Concomitant]
     Active Substance: POTASSIUM CHLORIDE
     Dosage: UNK, AS NEEDED (SLIDING SCALE ASDIR PRN)
     Route: 048
  7. POTASSIUM PHOSPHATE [Concomitant]
     Active Substance: POTASSIUM PHOSPHATE
     Dosage: UNK UNK, AS NEEDED(2 UDPKT TID PRN PO)
     Route: 048
  8. HYDROMORPHONE HCL [Concomitant]
     Active Substance: HYDROMORPHONE HYDROCHLORIDE
     Dosage: 0.3 MG, UNK (Q3H PRN IV)
     Route: 042
  9. HYDROMORPHONE HCL [Concomitant]
     Active Substance: HYDROMORPHONE HYDROCHLORIDE
     Dosage: 0.4 MG, UNK(Q3H PRN IV )
     Route: 042
  10. POTASSIUM CHLORIDE. [Concomitant]
     Active Substance: POTASSIUM CHLORIDE
     Dosage: 50 ML, AS NEEDED (ASDIR PRN)
     Route: 042
  11. MAGNESIUM OXIDE. [Concomitant]
     Active Substance: MAGNESIUM OXIDE
     Dosage: 800 MG, AS NEEDED (ASDIR PRN )
     Route: 048
  12. ASCORBIC ACID. [Concomitant]
     Active Substance: ASCORBIC ACID
     Dosage: 500 MG, DAILY
     Route: 048
  13. POTASSIUM CHLORIDE. [Concomitant]
     Active Substance: POTASSIUM CHLORIDE
     Dosage: UNK, AS NEEDED (SLIDING SCALE ASDIR PRN FEED-TUBE)
  14. TIKOSYN [Suspect]
     Active Substance: DOFETILIDE
     Indication: ELECTROCARDIOGRAM T WAVE ABNORMAL
     Dosage: 500 UG, 2X/DAY
     Dates: start: 201506
  15. SODIUM CHLORIDE. [Concomitant]
     Active Substance: SODIUM CHLORIDE
     Dosage: 1000 ML, UNK
     Route: 042
  16. PANTOPRAZOLE [Concomitant]
     Active Substance: PANTOPRAZOLE SODIUM
     Dosage: 40 MG, UNK
     Route: 048
  17. NALOXONE HYDROCHLORIDE. [Concomitant]
     Active Substance: NALOXONE HYDROCHLORIDE
     Dosage: 0.4 MG, AS NEEDED(ASDIR PRN IV )
     Route: 042
  18. MORPHINE SULFATE. [Concomitant]
     Active Substance: MORPHINE SULFATE
     Dosage: 2 MG, AS NEEDED (Q3H PRN)
     Route: 042
  19. ACETAMINOPHEN AND CODEINE [Concomitant]
     Active Substance: ACETAMINOPHEN\CODEINE PHOSPHATE
     Dosage: UNK, AS NEEDED(1 UDTAB Q4H PRN)
     Route: 048
  20. ALBUTEROL/IPRATROPIUM [Concomitant]
     Active Substance: ALBUTEROL\IPRATROPIUM
     Dosage: 3 ML, AS NEEDED (RTQ6H PRN NEB)
  21. PHOSPHORUS [Concomitant]
     Active Substance: PHOSPHORUS
     Dosage: UNK, AS NEEDED (1 EA CHECKLEVEL PRN)
  22. ASPIRIN. [Concomitant]
     Active Substance: ASPIRIN
     Dosage: 81 MG, DAILY
     Route: 048
  23. HYDRALAZINE HYDROCHLORIDE. [Concomitant]
     Active Substance: HYDRALAZINE HYDROCHLORIDE
     Dosage: 10 MG, AS NEEDED (Q4H PRN IV)
     Route: 042
  24. TIKOSYN [Suspect]
     Active Substance: DOFETILIDE
     Dosage: 200 UG, 2X/DAY
     Route: 048
  25. POTASSIUM CHLORIDE. [Concomitant]
     Active Substance: POTASSIUM CHLORIDE
     Dosage: 13.3 MEQ, AS NEEDED(TID PRN )
     Route: 048
  26. MAGNESIUM SULFATE/DEXTROSE [Concomitant]
     Dosage: 100 ML, AS NEEDED (ASDIR PRN)
     Route: 042
  27. ONDANSETRON HYDROCHLORIDE. [Concomitant]
     Active Substance: ONDANSETRON HYDROCHLORIDE
     Dosage: 4 MG, AS NEEDED (Q4H PRN)
     Route: 042

REACTIONS (3)
  - Product use issue [Unknown]
  - Chest pain [Unknown]
  - Confusional state [Recovering/Resolving]
